FAERS Safety Report 8975765 (Version 1)
Quarter: 2012Q4

REPORT INFORMATION
  Report Type: 
  Country: US (occurrence: US)
  Receive Date: 20121219
  Receipt Date: 20121219
  Transmission Date: 20130627
  Serious: No
  Sender: FDA-Public Use
  Company Number: US-PFIZER INC-2012315425

PATIENT
  Sex: Male

DRUGS (1)
  1. VIAGRA [Suspect]
     Indication: ERECTILE DYSFUNCTION
     Dosage: UNK
     Dates: start: 201211, end: 20121210

REACTIONS (3)
  - Penis disorder [Not Recovered/Not Resolved]
  - Painful erection [Not Recovered/Not Resolved]
  - Discomfort [Not Recovered/Not Resolved]
